FAERS Safety Report 17151145 (Version 1)
Quarter: 2019Q4

REPORT INFORMATION
  Report Type: Spontaneous
  Country: US (occurrence: US)
  Receive Date: 20191212
  Receipt Date: 20191212
  Transmission Date: 20200122
  Serious: Yes (Other)
  Sender: FDA-Public Use
  Company Number: None

PATIENT
  Age: 34 Year
  Sex: Female
  Weight: 60.3 kg

DRUGS (3)
  1. PROBIOTIC [Concomitant]
     Active Substance: PROBIOTICS NOS
  2. VITAMIN B12 [Concomitant]
     Active Substance: CYANOCOBALAMIN
  3. KENALOG [Suspect]
     Active Substance: TRIAMCINOLONE ACETONIDE
     Indication: PAIN
     Route: 030
     Dates: start: 20191107, end: 20191107

REACTIONS (14)
  - Hypoaesthesia oral [None]
  - Fatigue [None]
  - Dizziness [None]
  - Dyspnoea [None]
  - Taste disorder [None]
  - Decreased appetite [None]
  - Cortisol decreased [None]
  - Headache [None]
  - Head discomfort [None]
  - Ocular discomfort [None]
  - Nausea [None]
  - Disorientation [None]
  - Vision blurred [None]
  - Thirst [None]

NARRATIVE: CASE EVENT DATE: 20191107
